FAERS Safety Report 8961123 (Version 2)
Quarter: 2012Q4

REPORT INFORMATION
  Report Type: 
  Country: CA (occurrence: CA)
  Receive Date: 20121212
  Receipt Date: 20121214
  Transmission Date: 20130627
  Serious: Yes (Hospitalization, Other)
  Sender: FDA-Public Use
  Company Number: CA-GLAXOSMITHKLINE-A1001347A

PATIENT
  Age: 44 None
  Sex: Female

DRUGS (10)
  1. TYKERB [Suspect]
     Indication: BREAST CANCER METASTATIC
     Dosage: 1250MG Per day
     Route: 048
     Dates: start: 20121110
  2. XELODA [Concomitant]
  3. LYRICA [Concomitant]
  4. JANUMET [Concomitant]
  5. POTASSIUM [Concomitant]
  6. DEXAMETHASONE [Concomitant]
  7. SENOKOT [Concomitant]
  8. DOCUSATE SODIUM [Concomitant]
  9. HYDROMORPHONE [Concomitant]
  10. TYLENOL 3 [Concomitant]

REACTIONS (7)
  - Malignant pleural effusion [Not Recovered/Not Resolved]
  - Oedema peripheral [Not Recovered/Not Resolved]
  - Gait disturbance [Not Recovered/Not Resolved]
  - Balance disorder [Not Recovered/Not Resolved]
  - Stomatitis [Not Recovered/Not Resolved]
  - Dyspnoea [Unknown]
  - Pain [Unknown]
